FAERS Safety Report 4999774-0 (Version None)
Quarter: 2006Q2

REPORT INFORMATION
  Report Type: 
  Country: None (occurrence: None)
  Receive Date: 20060511
  Receipt Date: 20060501
  Transmission Date: 20061013
  Serious: Yes (Other)
  Sender: FDA-Public Use
  Company Number: NL-GLAXOSMITHKLINE-B0423332A

PATIENT
  Age: 66 Year
  Sex: Male
  Weight: 72 kg

DRUGS (2)
  1. DUTASTERIDE [Suspect]
     Dosage: .5MG PER DAY
     Route: 065
     Dates: start: 20060124
  2. OMNIC [Concomitant]

REACTIONS (3)
  - CONSTIPATION [None]
  - HYPOTHYROIDISM [None]
  - NASAL CONGESTION [None]
